FAERS Safety Report 11673567 (Version 3)
Quarter: 2015Q4

REPORT INFORMATION
  Report Type: Report from Study
  Country: US (occurrence: US)
  Receive Date: 20151028
  Receipt Date: 20151204
  Transmission Date: 20160304
  Serious: Yes (Hospitalization)
  Sender: FDA-Public Use
  Company Number: US-BIOGENIDEC-2015BI133381

PATIENT
  Age: 51 Year
  Sex: Female
  Weight: 52 kg

DRUGS (4)
  1. TYSABRI [Suspect]
     Active Substance: NATALIZUMAB
     Indication: MULTIPLE SCLEROSIS
     Route: 042
     Dates: start: 20070111
  2. FANTANYL [Concomitant]
     Route: 042
  3. FANTANYL [Concomitant]
     Route: 042
  4. MIDAZOLAM [Concomitant]
     Active Substance: MIDAZOLAM\MIDAZOLAM HYDROCHLORIDE
     Route: 042

REACTIONS (3)
  - Pulmonary oedema [Not Recovered/Not Resolved]
  - Arteriosclerosis coronary artery [Unknown]
  - Coronary artery disease [Recovered/Resolved]
